FAERS Safety Report 5330505-0 (Version None)
Quarter: 2007Q2

REPORT INFORMATION
  Report Type: 
  Country: None (occurrence: None)
  Receive Date: 20070517
  Receipt Date: 20070427
  Transmission Date: 20071010
  Serious: Yes (Other)
  Sender: FDA-Public Use
  Company Number: DE-GDP-0714913

PATIENT
  Sex: Male

DRUGS (1)
  1. METVIX (METHYL AMINOLEVULINATE HYDROHCLORIDE) [Suspect]
     Indication: BASAL CELL CARCINOMA
     Dosage: 1 APP ONCE; TP
     Route: 064
     Dates: start: 20070420, end: 20070420

REACTIONS (2)
  - EYE SWELLING [None]
  - VISUAL DISTURBANCE [None]
